FAERS Safety Report 7754343-4 (Version None)
Quarter: 2011Q3

REPORT INFORMATION
  Report Type: 
  Country: None (occurrence: None)
  Receive Date: 20110915
  Receipt Date: 20110906
  Transmission Date: 20111222
  Serious: Yes (Other)
  Sender: FDA-Public Use
  Company Number: PHHY2011ES79508

PATIENT
  Age: 52 Year
  Sex: Female

DRUGS (4)
  1. LAMIVUDINE [Concomitant]
     Dosage: UNK UKN, UNK
  2. CYCLOSPORINE [Suspect]
     Indication: LIVER TRANSPLANT
     Dosage: UNK UKN, UNK
  3. BASILIXIMAB [Suspect]
     Indication: LIVER TRANSPLANT
     Dosage: UNK UKN, UNK
  4. MYCOPHENOLATE MOFETIL [Suspect]
     Dosage: UNK UKN, UNK

REACTIONS (5)
  - HEPATITIS C [None]
  - CHRONIC HEPATITIS [None]
  - AUTOIMMUNE HEPATITIS [None]
  - CEREBRAL HAEMORRHAGE [None]
  - LIVER TRANSPLANT REJECTION [None]
